FAERS Safety Report 7950540-3 (Version None)
Quarter: 2011Q4

REPORT INFORMATION
  Report Type: 
  Country: None (occurrence: None)
  Receive Date: 20111130
  Receipt Date: 20111122
  Transmission Date: 20120403
  Serious: Yes (Hospitalization, Other)
  Sender: FDA-Public Use
  Company Number: PHHY2011GB102241

PATIENT
  Age: 76 Year
  Sex: Male

DRUGS (14)
  1. OMEPRAZOLE [Concomitant]
     Dates: start: 20111105
  2. AMLODIPINE [Concomitant]
     Dosage: 5 MG, QD
     Dates: start: 20111011
  3. MIRTAZAPINE [Concomitant]
     Dates: end: 20111108
  4. RAMIPRIL [Concomitant]
     Dates: end: 20111108
  5. AMIODARONE HCL [Suspect]
     Indication: ATRIAL FIBRILLATION
     Dosage: 200 MG, QD
     Route: 048
     Dates: start: 20110216, end: 20111108
  6. ACIDEX [Concomitant]
     Dates: start: 20111105
  7. FUROSEMIDE [Concomitant]
  8. PARACETAMOL [Concomitant]
     Dates: start: 20111105
  9. ISOSORBIDE MONONITRATE [Concomitant]
  10. AMOXICILLIN [Suspect]
     Dosage: 500 MG, TID
     Route: 048
     Dates: start: 20111011, end: 20111018
  11. ASPIRIN [Concomitant]
  12. BISOPROLOL FUMARATE [Concomitant]
  13. LACTULOSE [Concomitant]
  14. ATORVASTATIN [Concomitant]
     Dates: start: 20111107

REACTIONS (6)
  - BLOOD CREATININE INCREASED [None]
  - SKIN DISCOLOURATION [None]
  - BLOOD UREA DECREASED [None]
  - HYPOTHYROIDISM [None]
  - LIVER FUNCTION TEST ABNORMAL [None]
  - BLOOD POTASSIUM INCREASED [None]
